FAERS Safety Report 25125138 (Version 1)
Quarter: 2025Q1

REPORT INFORMATION
  Report Type: Spontaneous
  Country: US (occurrence: US)
  Receive Date: 20250326
  Receipt Date: 20250326
  Transmission Date: 20250409
  Serious: No
  Sender: MILLICENT HOLDINGS
  Company Number: US-Millicent Holdings Ltd.-MILL20250115

PATIENT
  Age: 57 Year
  Sex: Female

DRUGS (2)
  1. INTRAROSA [Suspect]
     Active Substance: PRASTERONE
     Indication: Hormone replacement therapy
     Route: 067
     Dates: start: 202412
  2. INTRAROSA [Suspect]
     Active Substance: PRASTERONE
     Route: 067

REACTIONS (6)
  - Vulvovaginal discomfort [Recovered/Resolved]
  - Vulval disorder [Recovered/Resolved]
  - Urinary incontinence [Recovered/Resolved]
  - Product dose omission in error [Recovered/Resolved]
  - Off label use [Unknown]
  - Suspected product quality issue [Unknown]

NARRATIVE: CASE EVENT DATE: 20241201
